FAERS Safety Report 8773786 (Version 3)
Quarter: 2012Q4

REPORT INFORMATION
  Report Type: 
  Country: US (occurrence: US)
  Receive Date: 20120907
  Receipt Date: 20121211
  Transmission Date: 20130627
  Serious: Yes (Other)
  Sender: FDA-Public Use
  Company Number: US-PFIZER INC-2012217949

PATIENT
  Age: 68 Year

DRUGS (1)
  1. CHANTIX [Suspect]
     Indication: SMOKING CESSATION THERAPY
     Dosage: 1 mg, 2x/day
     Route: 048
     Dates: start: 20120820, end: 20120823

REACTIONS (4)
  - Hypersensitivity [Unknown]
  - Lip swelling [Unknown]
  - Swelling face [Recovered/Resolved]
  - Hypoaesthesia oral [Unknown]
